FAERS Safety Report 24439655 (Version 2)
Quarter: 2024Q4

REPORT INFORMATION
  Report Type: Spontaneous
  Country: IT (occurrence: IT)
  Receive Date: 20241015
  Receipt Date: 20241113
  Transmission Date: 20250115
  Serious: Yes (Other)
  Sender: DAIICHI
  Company Number: IT-DSJP-DS-2024-102152-IT

PATIENT
  Sex: Female

DRUGS (5)
  1. TRASTUZUMAB DERUXTECAN [Suspect]
     Active Substance: TRASTUZUMAB DERUXTECAN
     Indication: Metastatic gastric cancer
     Dosage: 6.4 MG/KG
     Route: 065
     Dates: start: 20240226, end: 20240226
  2. TRASTUZUMAB DERUXTECAN [Suspect]
     Active Substance: TRASTUZUMAB DERUXTECAN
     Indication: Brain cancer metastatic
     Dosage: UNK
     Route: 065
     Dates: start: 20240318, end: 20240318
  3. TRASTUZUMAB DERUXTECAN [Suspect]
     Active Substance: TRASTUZUMAB DERUXTECAN
     Indication: HER2 positive gastric cancer
     Dosage: UNK
     Route: 065
     Dates: start: 20240408, end: 20240408
  4. TRASTUZUMAB DERUXTECAN [Suspect]
     Active Substance: TRASTUZUMAB DERUXTECAN
     Dosage: UNK
     Route: 065
     Dates: start: 20240429, end: 20240429
  5. TRASTUZUMAB DERUXTECAN [Suspect]
     Active Substance: TRASTUZUMAB DERUXTECAN
     Dosage: UNK
     Route: 065
     Dates: start: 20240924

REACTIONS (4)
  - Metastases to peritoneum [Unknown]
  - Metastases to central nervous system [Unknown]
  - Ejection fraction decreased [Recovered/Resolved]
  - Intentional product use issue [Unknown]

NARRATIVE: CASE EVENT DATE: 20240507
